FAERS Safety Report 6435461-X (Version None)
Quarter: 2009Q4

REPORT INFORMATION
  Report Type: 
  Country: None (occurrence: None)
  Receive Date: 20091110
  Receipt Date: 20091027
  Transmission Date: 20100525
  Serious: Yes (Other)
  Sender: FDA-Public Use
  Company Number: GR-ELI_LILLY_AND_COMPANY-GR200911001519

PATIENT
  Age: 53 Year
  Sex: Female

DRUGS (3)
  1. EVISTA [Suspect]
     Indication: OSTEOPOROSIS
     Dosage: 60 MG, DAILY (1/D)
     Route: 048
     Dates: start: 20070801
  2. CALCIORAL [Concomitant]
     Indication: OSTEOPOROSIS
     Dosage: UNK, UNKNOWN
     Route: 048
     Dates: start: 20070101
  3. ARTICLOX [Concomitant]
     Indication: GASTRITIS
     Dosage: 0.1429 MG
     Route: 030

REACTIONS (1)
  - LIPOPROTEIN (A) INCREASED [None]
